FAERS Safety Report 7944811-4 (Version None)
Quarter: 2011Q4

REPORT INFORMATION
  Report Type: 
  Country: None (occurrence: None)
  Receive Date: 20111129
  Receipt Date: 20111123
  Transmission Date: 20120403
  Serious: Yes (Other)
  Sender: FDA-Public Use
  Company Number: DE-BRISTOL-MYERS SQUIBB COMPANY-16247777

PATIENT
  Age: 15 Year
  Sex: Female

DRUGS (2)
  1. RISPERIDONE [Concomitant]
  2. ARIPIPRAZOLE [Suspect]
     Indication: AGGRESSION
     Route: 048

REACTIONS (2)
  - EPILEPSY [None]
  - TUBEROUS SCLEROSIS [None]
